FAERS Safety Report 4310237-8 (Version None)
Quarter: 2004Q1

REPORT INFORMATION
  Report Type: 
  Country: None (occurrence: None)
  Receive Date: 20040301
  Receipt Date: 20031219
  Transmission Date: 20041129
  Serious: No
  Sender: FDA-Public Use
  Company Number: WAES 0312USA02217

PATIENT
  Sex: Male

DRUGS (5)
  1. ZETIA [Suspect]
     Indication: HYPERCHOLESTEROLAEMIA
     Dosage: 10MG/DAILY/PO
  2. LOPID [Concomitant]
  3. VASOTEC [Concomitant]
  4. ZANTAC [Concomitant]
  5. ATENOLOL [Concomitant]

REACTIONS (1)
  - HAEMATURIA [None]
